FAERS Safety Report 4597432-8 (Version None)
Quarter: 2005Q1

REPORT INFORMATION
  Report Type: 
  Country: None (occurrence: None)
  Receive Date: 20050303
  Receipt Date: 20050222
  Transmission Date: 20050727
  Serious: Yes (Death)
  Sender: FDA-Public Use
  Company Number: ES-JNJFOC-20050205286

PATIENT
  Age: 64 Year
  Sex: Male

DRUGS (3)
  1. DURAGESIC-100 [Suspect]
     Route: 062
  2. DURAGESIC-100 [Suspect]
     Indication: ABDOMINAL PAIN UPPER
     Route: 062
  3. TRAMADOL HCL [Suspect]
     Indication: PAIN
     Route: 065

REACTIONS (11)
  - ANXIETY [None]
  - CACHEXIA [None]
  - CONSTIPATION [None]
  - DEATH [None]
  - DRUG INTERACTION [None]
  - DRUG WITHDRAWAL SYNDROME [None]
  - DRY MOUTH [None]
  - HYPERHIDROSIS [None]
  - INSOMNIA [None]
  - MEDICATION ERROR [None]
  - SOMNOLENCE [None]
